FAERS Safety Report 15538831 (Version 1)
Quarter: 2018Q4

REPORT INFORMATION
  Report Type: Spontaneous
  Country: US (occurrence: US)
  Receive Date: 20181022
  Receipt Date: 20181022
  Transmission Date: 20190205
  Serious: Yes (Hospitalization, Other)
  Sender: FDA-Public Use
  Company Number: US-GLAXOSMITHKLINE-US2018GSK189767

PATIENT
  Sex: Female

DRUGS (1)
  1. BREO ELLIPTA [Suspect]
     Active Substance: FLUTICASONE FUROATE\VILANTEROL TRIFENATATE
     Indication: CHRONIC OBSTRUCTIVE PULMONARY DISEASE
     Dosage: 100/25UG
     Route: 055
     Dates: start: 201805

REACTIONS (5)
  - Radiotherapy [Unknown]
  - Lung neoplasm [Unknown]
  - Loss of consciousness [Unknown]
  - Hospitalisation [Unknown]
  - Hypoxia [Unknown]
